FAERS Safety Report 20327441 (Version 1)
Quarter: 2022Q1

REPORT INFORMATION
  Report Type: Spontaneous
  Country: US (occurrence: US)
  Receive Date: 20220112
  Receipt Date: 20220112
  Transmission Date: 20220423
  Serious: No
  Sender: FDA-Public Use
  Company Number: MIQ-10152021-1428(V1)

PATIENT

DRUGS (3)
  1. VYLEESI [Suspect]
     Active Substance: BREMELANOTIDE ACETATE
     Indication: Libido decreased
     Dosage: 0.3 ML
     Dates: start: 202107
  2. VYLEESI [Suspect]
     Active Substance: BREMELANOTIDE ACETATE
     Dosage: 5 UNITS
     Route: 058
     Dates: start: 202107
  3. METFORMIN [Concomitant]
     Active Substance: METFORMIN HYDROCHLORIDE
     Indication: Type 2 diabetes mellitus
     Dosage: 500 MILLIGRAM, QD

REACTIONS (11)
  - Feeling jittery [Recovered/Resolved]
  - Unevaluable event [Unknown]
  - Distractibility [Recovered/Resolved]
  - Drug hypersensitivity [Unknown]
  - Insomnia [Unknown]
  - Movement disorder [Unknown]
  - Impaired work ability [Recovered/Resolved]
  - Intentional product use issue [Unknown]
  - Wrong technique in product usage process [Unknown]
  - Off label use [Unknown]
  - Medication error [Unknown]
